FAERS Safety Report 21647770 (Version 2)
Quarter: 2025Q3

REPORT INFORMATION
  Report Type: Spontaneous
  Country: EU (occurrence: EU)
  Receive Date: 20221128
  Receipt Date: 20250815
  Transmission Date: 20251020
  Serious: Yes (Hospitalization, Other)
  Sender: AUROBINDO
  Company Number: EU-SUN PHARMACEUTICAL INDUSTRIES LTD-2022RR-363509

PATIENT
  Age: 2 Month
  Sex: Female
  Weight: 3.82 kg

DRUGS (1)
  1. ACETAMINOPHEN [Suspect]
     Active Substance: ACETAMINOPHEN
     Indication: Irritability
     Route: 065

REACTIONS (2)
  - Hepatic cytolysis [Recovered/Resolved]
  - Acute kidney injury [Recovered/Resolved]
